FAERS Safety Report 9277513 (Version 2)
Quarter: 2013Q2

REPORT INFORMATION
  Report Type: Report from Study
  Country: FR (occurrence: FR)
  Receive Date: 20130508
  Receipt Date: 20130625
  Transmission Date: 20140414
  Serious: Yes (Hospitalization)
  Sender: FDA-Public Use
  Company Number: FR-MILLENNIUM PHARMACEUTICALS, INC.-2013-03302

PATIENT
  Sex: 0

DRUGS (7)
  1. VELCADE [Suspect]
     Indication: PLASMA CELL MYELOMA
     Dosage: 3 MG, UNK
     Route: 042
     Dates: start: 20121203
  2. DEXAMETHASONE [Suspect]
     Indication: PLASMA CELL MYELOMA
     Dosage: 20 MG, UNK
     Route: 048
     Dates: start: 20121203
  3. REVLIMID [Suspect]
     Indication: PLASMA CELL MYELOMA
     Dosage: UNK
     Route: 065
     Dates: start: 20130307
  4. REVLIMID [Suspect]
     Dosage: 15 MG, UNK
     Route: 065
     Dates: start: 20130315
  5. BROMAZEPAM [Suspect]
     Indication: DEPRESSION
     Dosage: 6 MG, UNK
     Route: 048
     Dates: start: 20121130
  6. LASILIX                            /00032601/ [Concomitant]
     Indication: OEDEMA
     Dosage: 160 MG, UNK
     Route: 048
     Dates: start: 20121227
  7. PROPRANOLOL [Concomitant]
     Indication: HYPERTENSION
     Dosage: 80 MG, UNK
     Route: 048
     Dates: start: 20130103

REACTIONS (7)
  - Gait disturbance [Recovering/Resolving]
  - Fall [None]
  - Neuropathy peripheral [None]
  - Renal failure [None]
  - Anaemia [None]
  - Gastritis [None]
  - Asthenia [None]
